FAERS Safety Report 9767280 (Version 1)
Quarter: 2013Q4

REPORT INFORMATION
  Report Type: Spontaneous
  Country: TR (occurrence: None)
  Receive Date: 20131213
  Receipt Date: 20131213
  Transmission Date: 20140711
  Serious: Yes (Death)
  Sender: FDA-Public Use
  Company Number: B0951985A

PATIENT
  Age: 53 Year
  Sex: Female

DRUGS (2)
  1. MELPHALAN [Suspect]
     Indication: PRODUCT USED FOR UNKNOWN INDICATION
     Route: 042
  2. FENTANYL [Suspect]
     Indication: PAIN

REACTIONS (5)
  - Encephalopathy [None]
  - Coma [None]
  - Respiratory failure [None]
  - Septic shock [None]
  - Delirium [None]
